FAERS Safety Report 4395083-1 (Version None)
Quarter: 2004Q3

REPORT INFORMATION
  Report Type: 
  Country: None (occurrence: None)
  Receive Date: 20040706
  Receipt Date: 20040617
  Transmission Date: 20050211
  Serious: Yes (Hospitalization)
  Sender: FDA-Public Use
  Company Number: US010256

PATIENT
  Age: 17 Year
  Sex: Male

DRUGS (1)
  1. GABITRIL [Suspect]
     Indication: BIPOLAR DISORDER
     Dosage: 720 MG ONCE ORAL
     Route: 048
     Dates: start: 20021001, end: 20021001

REACTIONS (4)
  - COMA [None]
  - CONVULSION [None]
  - OVERDOSE [None]
  - STATUS EPILEPTICUS [None]
